FAERS Safety Report 15651107 (Version 4)
Quarter: 2019Q1

REPORT INFORMATION
  Report Type: Spontaneous
  Country: US (occurrence: US)
  Receive Date: 20181123
  Receipt Date: 20190114
  Transmission Date: 20190417
  Serious: No
  Sender: FDA-Public Use
  Company Number: US-AMGEN-USASP2018165554

PATIENT
  Age: 52 Year
  Sex: Female
  Weight: 56.9 kg

DRUGS (6)
  1. PARSABIV [Suspect]
     Active Substance: ETELCALCETIDE HYDROCHLORIDE
     Indication: HYPERPARATHYROIDISM SECONDARY
     Dosage: 2.5 MG, 3 TIMES/WK
     Route: 042
     Dates: start: 20180829, end: 20180914
  2. TUMS [Concomitant]
     Active Substance: CALCIUM CARBONATE
     Dosage: UNK UNK, TID (WITH MEALS)
     Dates: start: 201612, end: 201806
  3. CALCIUM ACETATE. [Concomitant]
     Active Substance: CALCIUM ACETATE
     Dosage: UNK UNK, TID (WITH MEALS)
     Dates: start: 201612, end: 201806
  4. PARSABIV [Suspect]
     Active Substance: ETELCALCETIDE HYDROCHLORIDE
     Dosage: 10 MG, 3 TIMES/WK
     Route: 042
     Dates: start: 20181012
  5. PARSABIV [Suspect]
     Active Substance: ETELCALCETIDE HYDROCHLORIDE
     Dosage: 5 MG, 3 TIMES/WK
     Route: 042
     Dates: start: 20180914, end: 20181012
  6. HECTOROL [Concomitant]
     Active Substance: DOXERCALCIFEROL
     Dosage: 2 MUG, UNK
     Dates: start: 20171011, end: 20181010

REACTIONS (22)
  - Blood parathyroid hormone increased [Not Recovered/Not Resolved]
  - Calcium phosphate product increased [Unknown]
  - Adjusted calcium decreased [Unknown]
  - Blood urea nitrogen/creatinine ratio decreased [Unknown]
  - Glycosylated haemoglobin increased [Unknown]
  - Serum ferritin increased [Unknown]
  - Red blood cell count decreased [Unknown]
  - Red cell distribution width increased [Unknown]
  - Iron binding capacity total decreased [Unknown]
  - Blood phosphorus increased [Unknown]
  - Eosinophil count increased [Unknown]
  - Drug ineffective [Unknown]
  - White blood cell count decreased [Unknown]
  - Blood alkaline phosphatase increased [Unknown]
  - Blood creatinine increased [Unknown]
  - Haematocrit decreased [Unknown]
  - Blood glucose increased [Unknown]
  - Haemoglobin decreased [Unknown]
  - Underdose [Unknown]
  - Blood potassium increased [Unknown]
  - Blood calcium decreased [Not Recovered/Not Resolved]
  - Blood urea increased [Unknown]

NARRATIVE: CASE EVENT DATE: 2018
